FAERS Safety Report 23639474 (Version 1)
Quarter: 2024Q1

REPORT INFORMATION
  Report Type: Spontaneous
  Country: US (occurrence: US)
  Receive Date: 20240316
  Receipt Date: 20240316
  Transmission Date: 20240410
  Serious: Yes (Other)
  Sender: FDA-Public Use
  Company Number: US-TEVA-VS-3140848

PATIENT
  Sex: Female

DRUGS (2)
  1. NEFAZODONE HYDROCHLORIDE [Suspect]
     Active Substance: NEFAZODONE HYDROCHLORIDE
     Indication: Product used for unknown indication
     Route: 065
  2. ESTRADIOL [Concomitant]
     Active Substance: ESTRADIOL
     Dosage: INTRAVAGINAL
     Route: 067

REACTIONS (3)
  - Drug dependence [Unknown]
  - Expired product administered [Unknown]
  - Product availability issue [Unknown]

NARRATIVE: CASE EVENT DATE: 20220101
